FAERS Safety Report 8621836-7 (Version None)
Quarter: 2012Q3

REPORT INFORMATION
  Report Type: 
  Country: None (occurrence: None)
  Receive Date: 20120822
  Receipt Date: 20120822
  Transmission Date: 20120928
  Serious: Yes (Hospitalization)
  Sender: FDA-Public Use
  Company Number: None

PATIENT
  Sex: Female
  Weight: 86.1834 kg

DRUGS (1)
  1. LO LOESTRIN FE [Suspect]
     Indication: MENORRHAGIA
     Dosage: ONE PO DAILY
     Dates: start: 20110706, end: 20110816

REACTIONS (1)
  - DEEP VEIN THROMBOSIS [None]
